FAERS Safety Report 13337649 (Version 2)
Quarter: 2017Q1

REPORT INFORMATION
  Report Type: Report from Study
  Country: US (occurrence: US)
  Receive Date: 20170315
  Receipt Date: 20170322
  Transmission Date: 20170428
  Serious: Yes (Death, Hospitalization)
  Sender: FDA-Public Use
  Company Number: US-009507513-1703USA006000

PATIENT
  Age: 74 Year
  Sex: Male
  Weight: 106.5 kg

DRUGS (2)
  1. PEMBROLIZUMAB. [Suspect]
     Active Substance: PEMBROLIZUMAB
     Indication: TRANSITIONAL CELL CARCINOMA
     Dosage: 200 MG, Q3W
     Route: 042
     Dates: start: 20170127
  2. RECOMBINANT FC FUSION PROTEIN ANGIOGENESIS INHIBITOR [Suspect]
     Active Substance: INVESTIGATIONAL PRODUCT
     Indication: TRANSITIONAL CELL CARCINOMA
     Dosage: 1176 MG, CYCLICAL ON DAYS 1,8,15
     Route: 042
     Dates: start: 20170127, end: 20170210

REACTIONS (11)
  - Death [Fatal]
  - Blood creatine phosphokinase increased [Recovering/Resolving]
  - Hypoxia [Not Recovered/Not Resolved]
  - Fatigue [Not Recovered/Not Resolved]
  - Dyspnoea [Recovering/Resolving]
  - Dysphagia [Not Recovered/Not Resolved]
  - Troponin T increased [Recovering/Resolving]
  - Peak expiratory flow rate decreased [Unknown]
  - Autoimmune disorder [Unknown]
  - Asthenia [Unknown]
  - Blood pressure decreased [Unknown]

NARRATIVE: CASE EVENT DATE: 20170310
